APPROVED DRUG PRODUCT: SOTALOL HYDROCHLORIDE
Active Ingredient: SOTALOL HYDROCHLORIDE
Strength: 120MG
Dosage Form/Route: TABLET;ORAL
Application: A076883 | Product #002
Applicant: TEVA PHARMACEUTICALS USA INC
Approved: Jul 26, 2004 | RLD: No | RS: No | Type: DISCN